FAERS Safety Report 10005876 (Version 1)
Quarter: 2014Q1

REPORT INFORMATION
  Report Type: Spontaneous
  Country: US (occurrence: US)
  Receive Date: 20140313
  Receipt Date: 20140313
  Transmission Date: 20141002
  Serious: Yes (Hospitalization)
  Sender: FDA-Public Use
  Company Number: US-BAYER-2014-037541

PATIENT
  Age: 38 Year
  Sex: Female
  Weight: 49 kg

DRUGS (3)
  1. YAZ [Suspect]
  2. LORAZEPAM [Concomitant]
     Dosage: 1 MG, UNK
     Dates: start: 20090109, end: 20101019
  3. LEXAPRO [Concomitant]
     Dosage: 10 MG, QD
     Dates: start: 20090413, end: 20100428

REACTIONS (1)
  - Pulmonary embolism [None]
